FAERS Safety Report 9447875 (Version 1)
Quarter: 2013Q3

REPORT INFORMATION
  Report Type: Spontaneous
  Country: US (occurrence: None)
  Receive Date: 20130807
  Receipt Date: 20130807
  Transmission Date: 20140515
  Serious: Yes (Life-Threatening)
  Sender: FDA-Public Use
  Company Number: None

PATIENT
  Age: 65 Year
  Sex: Female
  Weight: 128 kg

DRUGS (2)
  1. ALTEPLASE [Suspect]
     Indication: PULMONARY EMBOLISM
     Dosage: 100MG ONCE INTRAVENOUS
     Route: 042
     Dates: start: 20130806
  2. HEPARIN [Concomitant]

REACTIONS (1)
  - Gastrointestinal haemorrhage [None]
